FAERS Safety Report 17043037 (Version 1)
Quarter: 2019Q4

REPORT INFORMATION
  Report Type: Spontaneous
  Country: US (occurrence: US)
  Receive Date: 20191017
  Receipt Date: 20191017
  Transmission Date: 20200122
  Serious: No
  Sender: FDA-Public Use
  Company Number: None

PATIENT
  Age: 30 Year
  Sex: Female

DRUGS (1)
  1. MAKENA [Suspect]
     Active Substance: HYDROXYPROGESTERONE CAPROATE
     Indication: PREMATURE LABOUR
     Route: 058

REACTIONS (5)
  - Needle issue [None]
  - Drug dose omission by device [None]
  - Injection site pain [None]
  - Injection site laceration [None]
  - Drug delivery system malfunction [None]

NARRATIVE: CASE EVENT DATE: 20190829
